FAERS Safety Report 9793019 (Version 4)
Quarter: 2014Q1

REPORT INFORMATION
  Report Type: Spontaneous
  Country: JP (occurrence: JP)
  Receive Date: 20140102
  Receipt Date: 20140219
  Transmission Date: 20141002
  Serious: Yes (Other)
  Sender: FDA-Public Use
  Company Number: JP-PFIZER INC-2013370754

PATIENT
  Age: 5 Year
  Sex: Male
  Weight: 15.8 kg

DRUGS (1)
  1. GENOTROPIN GOQUICK [Suspect]
     Indication: GROWTH HORMONE DEFICIENCY
     Dosage: 0.35 MG, 1X/DAY
     Route: 058
     Dates: start: 20130912

REACTIONS (1)
  - Hypothyroidism [Not Recovered/Not Resolved]
